FAERS Safety Report 6749129-3 (Version None)
Quarter: 2010Q2

REPORT INFORMATION
  Report Type: 
  Country: None (occurrence: None)
  Receive Date: 20100601
  Receipt Date: 20100521
  Transmission Date: 20101027
  Serious: Yes (Hospitalization)
  Sender: FDA-Public Use
  Company Number: US-JNJFOC-20100509151

PATIENT
  Age: 20 Year
  Sex: Male

DRUGS (4)
  1. REMICADE [Suspect]
     Indication: COLITIS ULCERATIVE
     Route: 042
  2. IMURAN [Suspect]
     Indication: COLITIS ULCERATIVE
     Route: 065
  3. SULFASALAZINE [Concomitant]
     Indication: COLITIS ULCERATIVE
     Route: 065
  4. PREDNISONE TAB [Concomitant]
     Indication: COLITIS ULCERATIVE
     Route: 065

REACTIONS (1)
  - PANCREATITIS [None]
